FAERS Safety Report 8372544-1 (Version None)
Quarter: 2012Q2

REPORT INFORMATION
  Report Type: 
  Country: None (occurrence: None)
  Receive Date: 20120521
  Receipt Date: 20120515
  Transmission Date: 20120825
  Serious: Yes (Other)
  Sender: FDA-Public Use
  Company Number: PHHY2012JP032664

PATIENT
  Sex: Male
  Weight: 47 kg

DRUGS (8)
  1. OZEX [Concomitant]
     Dosage: 450 MG, UNK
     Route: 048
     Dates: start: 20120329, end: 20120404
  2. ENALAPRIL MALEATE [Concomitant]
     Indication: HYPERTENSION
     Dosage: 10 MG, UNK
     Route: 048
     Dates: start: 20120329, end: 20120411
  3. EXJADE [Suspect]
     Indication: IRON OVERLOAD
     Dosage: 625 MG, DAILY
     Route: 048
     Dates: start: 20120329, end: 20120411
  4. LAC B [Concomitant]
     Dosage: 3 G, UNK
     Route: 048
     Dates: start: 20120329, end: 20120411
  5. JANUVIA [Concomitant]
     Indication: DIABETES MELLITUS
     Dosage: 50 MG, UNK
     Route: 048
     Dates: start: 20120329, end: 20120411
  6. ISODINE [Concomitant]
  7. KENTAN [Concomitant]
     Route: 048
  8. AMLODIPINE BESYLATE [Concomitant]
     Indication: HYPERTENSION
     Dosage: 5 MG, UNK
     Route: 048
     Dates: start: 20120329, end: 20120411

REACTIONS (7)
  - INJURY [None]
  - VISUAL ACUITY REDUCED [None]
  - DIZZINESS [None]
  - DYSSTASIA [None]
  - BALANCE DISORDER [None]
  - FALL [None]
  - HEARING IMPAIRED [None]
